FAERS Safety Report 9835093 (Version 2)
Quarter: 2014Q1

REPORT INFORMATION
  Report Type: Spontaneous
  Country: US (occurrence: US)
  Receive Date: 20140122
  Receipt Date: 20140122
  Transmission Date: 20141002
  Serious: Yes (Hospitalization)
  Sender: FDA-Public Use
  Company Number: US-B.I. PHARMACEUTICALS,INC./RIDGEFIELD-2013-BI-23037BP

PATIENT
  Age: 83 Year
  Sex: Male
  Weight: 99.79 kg

DRUGS (9)
  1. PRADAXA [Suspect]
     Indication: ATRIAL FIBRILLATION
     Route: 048
     Dates: start: 20101202, end: 20111229
  2. OMEPRAZOLE [Concomitant]
     Dosage: 20 MG
     Route: 048
  3. SERTALINE [Concomitant]
     Dosage: 50 MG
     Route: 048
  4. AVODART [Concomitant]
     Dosage: 0.5 MG
     Route: 048
  5. FLOMAX [Concomitant]
     Dosage: 0.4 MG
     Route: 048
  6. LASIX [Concomitant]
     Dosage: 20 MG
     Route: 048
  7. LISINOPRIL [Concomitant]
     Dosage: 2.5 MG
     Route: 048
  8. METOPROLOL [Concomitant]
     Dosage: 24.6 MG
     Route: 048
  9. LIVALO [Concomitant]
     Dosage: 2 MG
     Route: 048

REACTIONS (2)
  - Subdural haematoma [Unknown]
  - Coagulopathy [Unknown]
